FAERS Safety Report 11112875 (Version 2)
Quarter: 2015Q3

REPORT INFORMATION
  Report Type: Spontaneous
  Country: US (occurrence: US)
  Receive Date: 20150514
  Receipt Date: 20150703
  Transmission Date: 20151125
  Serious: Yes (Hospitalization)
  Sender: FDA-Public Use
  Company Number: US-MERCK-1505USA003186

PATIENT
  Age: 13 Year
  Sex: Female
  Weight: 55 kg

DRUGS (2)
  1. NOXAFIL [Suspect]
     Active Substance: POSACONAZOLE
     Indication: SINUSITIS
     Dosage: 400 MG, BID
     Route: 048
     Dates: start: 2014
  2. NOXAFIL [Concomitant]
     Active Substance: POSACONAZOLE
     Indication: SINUSITIS
     Dosage: 400 MG, BID
     Route: 048
     Dates: start: 201407

REACTIONS (3)
  - Toxicity to various agents [Recovered/Resolved]
  - Drug prescribing error [Unknown]
  - Incorrect drug dosage form administered [Unknown]
